FAERS Safety Report 7561116-4 (Version None)
Quarter: 2011Q2

REPORT INFORMATION
  Report Type: 
  Country: None (occurrence: None)
  Receive Date: 20110621
  Receipt Date: 20110620
  Transmission Date: 20111010
  Serious: Yes (Death, Hospitalization, Other)
  Sender: FDA-Public Use
  Company Number: US-ELI_LILLY_AND_COMPANY-US200905004484

PATIENT
  Sex: Female
  Weight: 117.91 kg

DRUGS (3)
  1. BYETTA [Suspect]
     Dosage: 10 UG, UNK
     Route: 058
     Dates: end: 20070402
  2. METFORMIN HCL [Concomitant]
     Indication: TYPE 2 DIABETES MELLITUS
  3. BYETTA [Suspect]
     Indication: TYPE 2 DIABETES MELLITUS
     Dosage: 5 UG, 2/D
     Route: 058
     Dates: start: 20070107

REACTIONS (6)
  - HEPATIC ISCHAEMIA [None]
  - BILIARY DYSKINESIA [None]
  - GASTROINTESTINAL ISCHAEMIA [None]
  - PANCREATITIS ACUTE [None]
  - METABOLIC ACIDOSIS [None]
  - DIALYSIS [None]
